FAERS Safety Report 9297062 (Version 1)
Quarter: 2013Q2

REPORT INFORMATION
  Report Type: Spontaneous
  Country: KR (occurrence: KR)
  Receive Date: 20130519
  Receipt Date: 20130519
  Transmission Date: 20140414
  Serious: Yes (Hospitalization)
  Sender: FDA-Public Use
  Company Number: KR-MYLANLABS-2013S1010034

PATIENT
  Age: 62 Year
  Sex: Male

DRUGS (5)
  1. METFORMIN [Suspect]
     Indication: DIABETES MELLITUS
     Dosage: 1000MG
     Route: 065
  2. AMLODIPINE [Concomitant]
     Dosage: 5MG
     Route: 065
  3. VALSARTAN [Concomitant]
     Dosage: 160MG
     Route: 065
  4. CALCIUM CARBONATE [Concomitant]
     Dosage: 1500MG
     Route: 065
  5. GLICLAZIDE [Concomitant]
     Dosage: 30MG
     Route: 065

REACTIONS (3)
  - Encephalopathy [Recovered/Resolved]
  - Decreased appetite [Unknown]
  - Abdominal discomfort [Unknown]
